FAERS Safety Report 9164149 (Version 1)
Quarter: 2013Q1

REPORT INFORMATION
  Report Type: Spontaneous
  Country: DE (occurrence: DE)
  Receive Date: 20130315
  Receipt Date: 20130315
  Transmission Date: 20140127
  Serious: Yes (Life-Threatening, Hospitalization)
  Sender: FDA-Public Use
  Company Number: DE-GE HEALTHCARE MEDICAL DIAGNOSTICS-OMPQ-GE-1303S-0314

PATIENT
  Age: 25 Year
  Sex: Male
  Weight: 100 kg

DRUGS (3)
  1. ACCUPAQUE [Suspect]
     Indication: HIATUS HERNIA
     Route: 042
     Dates: start: 20130308, end: 20130308
  2. ACCUPAQUE [Suspect]
     Indication: ANGIOPATHY
  3. ACCUPAQUE [Suspect]
     Indication: DIAGNOSTIC PROCEDURE

REACTIONS (3)
  - Extravasation [Unknown]
  - Urticaria [Unknown]
  - Respiratory tract congestion [Unknown]
